FAERS Safety Report 5600282-4 (Version None)
Quarter: 2008Q1

REPORT INFORMATION
  Report Type: 
  Country: None (occurrence: None)
  Receive Date: 20080123
  Receipt Date: 20080114
  Transmission Date: 20080703
  Serious: Yes (Hospitalization)
  Sender: FDA-Public Use
  Company Number: FR-AVENTIS-200810215FR

PATIENT
  Age: 1 Day
  Sex: Female
  Weight: 1.13 kg

DRUGS (4)
  1. LOVENOX [Suspect]
     Route: 064
     Dates: start: 20060603, end: 20061212
  2. TENORMIN [Suspect]
     Route: 064
  3. CIPRALAN [Concomitant]
     Route: 064
     Dates: end: 20060603
  4. PREVISCAN                          /00789001/ [Concomitant]
     Route: 064
     Dates: end: 20060603

REACTIONS (6)
  - ATRIAL SEPTAL DEFECT [None]
  - BRADYCARDIA NEONATAL [None]
  - CONGENITAL GREAT VESSEL ANOMALY [None]
  - DRUG EXPOSURE DURING PREGNANCY [None]
  - FOETAL GROWTH RETARDATION [None]
  - NEONATAL RESPIRATORY ARREST [None]
